FAERS Safety Report 20976021 (Version 1)
Quarter: 2022Q2

REPORT INFORMATION
  Report Type: Spontaneous
  Country: US (occurrence: US)
  Receive Date: 20220617
  Receipt Date: 20220617
  Transmission Date: 20220721
  Serious: Yes (Death, Other)
  Sender: FDA-Public Use
  Company Number: US-BRISTOL-MYERS SQUIBB COMPANY-2022-058563

PATIENT
  Age: 54 Year
  Sex: Female

DRUGS (2)
  1. YERVOY [Suspect]
     Active Substance: IPILIMUMAB
     Indication: Ovarian cancer
     Dosage: DOSE : OPDIVO: 510 MG YERVOY 170 MG;     FREQ : EVERY 14 DAYS
     Route: 042
     Dates: end: 20211015
  2. OPDIVO [Suspect]
     Active Substance: NIVOLUMAB
     Indication: Ovarian cancer
     Dosage: DOSE : OPDIVO: 510 MG YERVOY 170 MG;     FREQ : EVERY 14 DAYS
     Route: 042
     Dates: end: 20211015

REACTIONS (2)
  - Death [Fatal]
  - Intentional product use issue [Unknown]
